FAERS Safety Report 4444898-X (Version None)
Quarter: 2004Q3

REPORT INFORMATION
  Report Type: 
  Country: None (occurrence: None)
  Receive Date: 20040909
  Receipt Date: 20040831
  Transmission Date: 20050211
  Serious: Yes (Other)
  Sender: FDA-Public Use
  Company Number: FR-GLAXOSMITHKLINE-B0343899A

PATIENT
  Age: 10 Year
  Sex: Male
  Weight: 22 kg

DRUGS (6)
  1. SERETIDE [Suspect]
     Indication: BRONCHOPULMONARY DISEASE
     Dosage: 1PUFF TWICE PER DAY
     Route: 055
     Dates: start: 20020101, end: 20040801
  2. NORVIR [Suspect]
     Indication: HIV INFECTION
     Dosage: 100MG TWICE PER DAY
     Route: 048
     Dates: start: 20030101
  3. KALETRA [Suspect]
     Indication: HIV INFECTION
     Dosage: 2.5ML TWICE PER DAY
     Route: 048
     Dates: start: 20030101
  4. ZIAGEN [Concomitant]
     Indication: HIV INFECTION
     Route: 048
  5. EPIVIR [Concomitant]
     Indication: HIV INFECTION
     Route: 048
  6. FUZEON [Concomitant]
     Indication: HIV INFECTION

REACTIONS (14)
  - ADRENAL CORTICAL INSUFFICIENCY [None]
  - ADRENOCORTICAL INSUFFICIENCY ACUTE [None]
  - CUSHING'S SYNDROME [None]
  - CUSHINGOID [None]
  - DIABETES MELLITUS [None]
  - DIARRHOEA [None]
  - DRUG INTERACTION [None]
  - GROWTH RETARDATION [None]
  - HYPERADRENOCORTICISM [None]
  - HYPERINSULINISM [None]
  - HYPERTENSION [None]
  - REFUSAL OF TREATMENT BY PATIENT [None]
  - VOMITING [None]
  - WEIGHT INCREASED [None]
